FAERS Safety Report 7939168-9 (Version None)
Quarter: 2011Q4

REPORT INFORMATION
  Report Type: 
  Country: None (occurrence: None)
  Receive Date: 20111124
  Receipt Date: 20111114
  Transmission Date: 20120403
  Serious: Yes (Death, Hospitalization)
  Sender: FDA-Public Use
  Company Number: JP-BRISTOL-MYERS SQUIBB COMPANY-16231128

PATIENT
  Age: 69 Year
  Sex: Male
  Weight: 50 kg

DRUGS (6)
  1. DIPHENHYDRAMINE HCL [Concomitant]
     Indication: PREMEDICATION
  2. CARBOPLATIN [Suspect]
     Indication: SMALL CELL LUNG CANCER STAGE UNSPECIFIED
     Dosage: OVER 30 MINUTES BASED ON A CALCULATED AUC
  3. ONDANSETRON [Concomitant]
     Indication: PREMEDICATION
  4. ALLOPURINOL [Concomitant]
     Indication: PREMEDICATION
  5. RANITIDINE [Concomitant]
     Indication: PREMEDICATION
  6. DEXAMETHASONE [Concomitant]
     Indication: PREMEDICATION

REACTIONS (2)
  - DEATH [None]
  - ATRIAL FLUTTER [None]
